FAERS Safety Report 4790356-2 (Version None)
Quarter: 2005Q4

REPORT INFORMATION
  Report Type: 
  Country: None (occurrence: None)
  Receive Date: 20051005
  Receipt Date: 20051005
  Transmission Date: 20060501
  Serious: Yes (Life-Threatening)
  Sender: FDA-Public Use
  Company Number: None

PATIENT
  Sex: Male

DRUGS (19)
  1. HEPARIN [Suspect]
     Indication: THROMBOSIS PROPHYLAXIS
     Dosage: 700-850 UNITS/HR
     Dates: start: 20040719, end: 20040721
  2. HEPARIN [Suspect]
     Indication: THROMBOSIS PROPHYLAXIS
     Dosage: 700-850 UNITS/HR
     Dates: start: 20040726, end: 20040727
  3. AMIODARONE [Concomitant]
  4. ATORVASTATIN [Concomitant]
  5. BISACODYL [Concomitant]
  6. DOCUSATE [Concomitant]
  7. FUROSEMIDE [Concomitant]
  8. LANSOPRAZOLE [Concomitant]
  9. LISINOPRIL [Concomitant]
  10. METOPROLOL [Concomitant]
  11. MONTELUKAST [Concomitant]
  12. NYSTATIN SUPP [Concomitant]
  13. POTASSIUM CHLORIDE [Concomitant]
  14. MILK OF MAG [Concomitant]
  15. OXYCODONE HCL [Concomitant]
  16. ACET [Concomitant]
  17. ALBUTEROL [Concomitant]
  18. FLUTICASONE [Concomitant]
  19. IPRATROP [Concomitant]

REACTIONS (6)
  - ATRIAL FIBRILLATION [None]
  - ATRIAL FLUTTER [None]
  - HEPARIN-INDUCED THROMBOCYTOPENIA [None]
  - IMMUNOLOGY TEST ABNORMAL [None]
  - INTERNATIONAL NORMALISED RATIO INCREASED [None]
  - THROMBOSIS [None]
